FAERS Safety Report 7352131-4 (Version None)
Quarter: 2011Q1

REPORT INFORMATION
  Report Type: 
  Country: None (occurrence: None)
  Receive Date: 20110315
  Receipt Date: 20110314
  Transmission Date: 20110831
  Serious: Yes (Hospitalization, Other)
  Sender: FDA-Public Use
  Company Number: US-ASTRAZENECA-2009UW08171

PATIENT
  Age: 43 Year
  Sex: Male
  Weight: 95.3 kg

DRUGS (33)
  1. SEROQUEL [Suspect]
     Dosage: 100MG-600MG
     Route: 048
     Dates: start: 20031204
  2. SEROQUEL [Suspect]
     Dosage: 100MG-600MG
     Route: 048
     Dates: start: 20031204
  3. CYMBALTA [Concomitant]
     Route: 048
  4. SEROQUEL [Suspect]
     Indication: PSYCHOTIC DISORDER
     Route: 048
     Dates: start: 20010101, end: 20031201
  5. SEROQUEL [Suspect]
     Dosage: 300MG
     Route: 048
     Dates: start: 20040102
  6. DEPAKOTE [Concomitant]
     Indication: AFFECTIVE DISORDER
     Dosage: 250MG - 1000MG
     Dates: start: 20031204
  7. NASONEX [Concomitant]
     Dosage: 50MCG/AC SPR
     Dates: start: 20031106
  8. SEROQUEL [Suspect]
     Route: 048
     Dates: start: 20010101, end: 20040101
  9. SEROQUEL [Suspect]
     Route: 048
     Dates: start: 20031222
  10. ZOLOFT [Concomitant]
     Dates: start: 20031101
  11. VIOXX [Concomitant]
     Dates: start: 20040105
  12. PROPO-N/APAP [Concomitant]
     Dosage: 100-650MG
     Dates: start: 20030929
  13. TRILEPTAL [Concomitant]
     Dosage: 300-600 MG
     Route: 048
     Dates: start: 20060531
  14. VALPROIC ACID [Concomitant]
     Dosage: 250 MG II BID
     Route: 048
     Dates: start: 20031230
  15. SEROQUEL [Suspect]
     Dosage: 300MG
     Route: 048
     Dates: start: 20040102
  16. ZOLOFT [Concomitant]
     Route: 048
     Dates: start: 20031204
  17. SYNTHROID [Concomitant]
     Dosage: 175 QD
     Dates: start: 20031222
  18. SYNTHROID [Concomitant]
     Dosage: 175MCG, 0.15 MG DAILY
     Dates: start: 20040105
  19. LEXAPRO [Concomitant]
     Dates: start: 20030929
  20. EFFEXOR XR/EFFEXOR [Concomitant]
     Dates: start: 20031125
  21. DARVOCET [Concomitant]
     Dates: start: 20031127
  22. SEROQUEL [Suspect]
     Route: 048
     Dates: start: 20010101, end: 20040101
  23. SEROQUEL [Suspect]
     Route: 048
     Dates: start: 20031230
  24. DEPAKOTE [Concomitant]
     Dates: start: 20031222
  25. SEROQUEL [Suspect]
     Route: 048
     Dates: start: 20031222
  26. SYNTHROID [Concomitant]
     Indication: THYROID DISORDER
     Dosage: 100MCG - 150 MCG,
     Dates: start: 20031204
  27. XANAX [Concomitant]
     Dates: start: 20031125
  28. RISPERDAL [Concomitant]
     Dosage: ONE OR TWO WEEKS
     Dates: start: 20031101
  29. RISPERDAL [Concomitant]
     Dates: start: 20031127
  30. SEROQUEL [Suspect]
     Indication: BIPOLAR DISORDER
     Route: 048
     Dates: start: 20010101, end: 20031201
  31. ZOLOFT [Concomitant]
     Dates: start: 20031222
  32. SEROQUEL [Suspect]
     Route: 048
     Dates: start: 20031230
  33. ABILIFY [Concomitant]
     Route: 048
     Dates: start: 20060531

REACTIONS (5)
  - ARTHRALGIA [None]
  - ARTHROPATHY [None]
  - TYPE 2 DIABETES MELLITUS [None]
  - DIABETIC COMPLICATION [None]
  - ERECTILE DYSFUNCTION [None]
